FAERS Safety Report 9555190 (Version 1)
Quarter: 2013Q3

REPORT INFORMATION
  Report Type: Spontaneous
  Country: US (occurrence: US)
  Receive Date: 20130926
  Receipt Date: 20130926
  Transmission Date: 20140515
  Serious: Yes (Other)
  Sender: FDA-Public Use
  Company Number: US-AMGEN-USASP2013066883

PATIENT
  Age: 66 Year
  Sex: Female

DRUGS (3)
  1. NEULASTA [Suspect]
     Indication: PROPHYLAXIS
     Dosage: 6 MG, UNK
     Route: 065
     Dates: start: 20130816
  2. CARBOPLATIN [Concomitant]
     Dosage: UNK, EVERY THREE WEEKS
  3. TAXOL [Concomitant]
     Dosage: UNK, EVERY THREE WEEKS

REACTIONS (1)
  - Anaphylactic reaction [Unknown]
